FAERS Safety Report 6524086-3 (Version None)
Quarter: 2009Q4

REPORT INFORMATION
  Report Type: 
  Country: None (occurrence: None)
  Receive Date: 20091231
  Receipt Date: 20091218
  Transmission Date: 20100525
  Serious: Yes (Other)
  Sender: FDA-Public Use
  Company Number: US-SANOFI-AVENTIS-A03200905046

PATIENT
  Age: 14 Month
  Sex: Female
  Weight: 8 kg

DRUGS (15)
  1. PLAVIX [Suspect]
     Dosage: DISSOLVE ? TABLET (18.75 MG) WITH 5 ML OF WATER; GIVE 1.6 MG = 0.48 ML; DISCARD THE REST
     Route: 048
     Dates: start: 20091025, end: 20091101
  2. PLAVIX [Suspect]
     Indication: ANTICOAGULANT THERAPY
     Dosage: DISSOLVE ? TABLET (18.75 MG) WITH 5 ML OF WATER; GIVE 1.6 MG = 0.48 ML; DISCARD THE REST
     Route: 048
     Dates: start: 20091025, end: 20091101
  3. PLAVIX [Suspect]
     Dosage: 1/4 OF A TABLET
     Route: 048
     Dates: start: 20091102, end: 20091102
  4. PLAVIX [Suspect]
     Dosage: 1/4 OF A TABLET
     Route: 048
     Dates: start: 20091102, end: 20091102
  5. PLAVIX [Suspect]
     Dosage: DISSOLVE ? TABLET (18.75 MG) WITH 5 ML OF WATER; GIVE 1.6 MG = 0.48 ML; DISCARD THE REST
     Route: 048
     Dates: start: 20091104
  6. PLAVIX [Suspect]
     Dosage: DISSOLVE ? TABLET (18.75 MG) WITH 5 ML OF WATER; GIVE 1.6 MG = 0.48 ML; DISCARD THE REST
     Route: 048
     Dates: start: 20091104
  7. ZANTAC [Concomitant]
     Route: 048
     Dates: start: 20091025
  8. BACTRIM [Concomitant]
     Indication: PROPHYLAXIS
     Route: 048
     Dates: start: 20091025
  9. M.V.I. [Concomitant]
     Route: 048
  10. ROBINUL [Concomitant]
  11. LASIX [Concomitant]
     Route: 048
  12. DIFLUCAN [Concomitant]
     Indication: PROPHYLAXIS
  13. DIGOXIN [Concomitant]
  14. CALCIUM [Concomitant]
  15. ASPIRIN [Concomitant]

REACTIONS (2)
  - OFF LABEL USE [None]
  - OVERDOSE [None]
